FAERS Safety Report 10679046 (Version 1)
Quarter: 2014Q4

REPORT INFORMATION
  Report Type: Spontaneous
  Country: US (occurrence: None)
  Receive Date: 20141224
  Receipt Date: 20141224
  Transmission Date: 20150529
  Serious: Yes (Other)
  Sender: FDA-Public Use
  Company Number: None

PATIENT
  Age: 52 Year
  Sex: Male

DRUGS (1)
  1. IMBRUVICA [Suspect]
     Active Substance: IBRUTINIB
     Indication: PRODUCT USED FOR UNKNOWN INDICATION
     Dosage: 140 MG TAKE 3 DAILY
     Route: 048
     Dates: start: 20141201

REACTIONS (2)
  - Stomatitis [None]
  - Heart rate irregular [None]

NARRATIVE: CASE EVENT DATE: 20141222
